FAERS Safety Report 23683141 (Version 1)
Quarter: 2024Q1

REPORT INFORMATION
  Report Type: Spontaneous
  Country: JP (occurrence: JP)
  Receive Date: 20240328
  Receipt Date: 20240328
  Transmission Date: 20240409
  Serious: Yes (Death, Other)
  Sender: FDA-Public Use
  Company Number: JP-OTSUKA-2024_008153

PATIENT
  Age: 23 Month
  Sex: Female

DRUGS (2)
  1. BUSULFEX [Suspect]
     Active Substance: BUSULFAN
     Indication: Allogenic stem cell transplantation
     Dosage: UNK
     Route: 065
  2. BUSULFEX [Suspect]
     Active Substance: BUSULFAN
     Indication: Premedication

REACTIONS (2)
  - Neoplasm [Fatal]
  - Venoocclusive liver disease [Unknown]
